FAERS Safety Report 4746021-0 (Version None)
Quarter: 2005Q3

REPORT INFORMATION
  Report Type: 
  Country: None (occurrence: None)
  Receive Date: 20050816
  Receipt Date: 20050812
  Transmission Date: 20060218
  Serious: Yes (Death, Hospitalization)
  Sender: FDA-Public Use
  Company Number: FR-BRISTOL-MYERS SQUIBB COMPANY-13076625

PATIENT
  Age: 55 Year
  Sex: Male

DRUGS (2)
  1. CISPLATIN [Suspect]
     Indication: NON-SMALL CELL LUNG CANCER
     Dosage: THERAPY INITIATED 13-MAY-2003
     Route: 042
     Dates: start: 20030625, end: 20030625
  2. VINFLUNINE IV [Suspect]
     Indication: NON-SMALL CELL LUNG CANCER
     Dosage: THERAPY INITIATED 13-MAY-2003. GIVEN DAY 1 EVERY 3 WEEKS (DOSE 487 MG).
     Route: 042
     Dates: start: 20030625, end: 20030625

REACTIONS (4)
  - COMA [None]
  - HYPOTENSION [None]
  - LEUKOPENIA [None]
  - PSEUDOMONAL SEPSIS [None]
